FAERS Safety Report 7898222-0 (Version None)
Quarter: 2011Q4

REPORT INFORMATION
  Report Type: 
  Country: None (occurrence: None)
  Receive Date: 20111107
  Receipt Date: 20111102
  Transmission Date: 20120403
  Serious: Yes (Other)
  Sender: FDA-Public Use
  Company Number: US-GLAXOSMITHKLINE-A0921095A

PATIENT
  Age: 60 Year
  Sex: Male
  Weight: 102.7 kg

DRUGS (3)
  1. IPRATROPIUM BROMIDE [Concomitant]
     Dosage: 2SPR FOUR TIMES PER DAY
     Dates: end: 20110329
  2. SALINE NASAL SPRAY [Concomitant]
     Dates: start: 20090101, end: 20110329
  3. VERAMYST [Suspect]
     Indication: RHINITIS ALLERGIC
     Route: 045
     Dates: start: 20090223, end: 20110421

REACTIONS (9)
  - NASAL SEPTUM PERFORATION [None]
  - NASAL ULCER [None]
  - EPISTAXIS [None]
  - NASAL OEDEMA [None]
  - ERYTHEMA [None]
  - NASAL DISCOMFORT [None]
  - SCAB [None]
  - NASAL DISORDER [None]
  - NASAL SEPTUM DISORDER [None]
